FAERS Safety Report 10138193 (Version 1)
Quarter: 2014Q2

REPORT INFORMATION
  Report Type: Spontaneous
  Country: US (occurrence: US)
  Receive Date: 20140429
  Receipt Date: 20140429
  Transmission Date: 20141212
  Serious: No
  Sender: FDA-Public Use
  Company Number: US-PFIZER INC-2014114064

PATIENT
  Age: 28 Year
  Sex: Male
  Weight: 95.24 kg

DRUGS (1)
  1. PREMPRO [Suspect]
     Dosage: 0.625 MG, DAILY

REACTIONS (3)
  - Gynaecomastia [Unknown]
  - Blood testosterone decreased [Unknown]
  - Intentional product misuse [Unknown]
